FAERS Safety Report 16766934 (Version 4)
Quarter: 2020Q1

REPORT INFORMATION
  Report Type: Spontaneous
  Country: US (occurrence: US)
  Receive Date: 20190903
  Receipt Date: 20200206
  Transmission Date: 20200409
  Serious: No
  Sender: FDA-Public Use
  Company Number: US-PFIZER INC-2019374015

PATIENT
  Age: 56 Year
  Sex: Female
  Weight: 68 kg

DRUGS (5)
  1. CELEBREX [Suspect]
     Active Substance: CELECOXIB
     Indication: ARTHRALGIA
     Dosage: 200 MG, AS NEEDED (USUALLY 1 EVERY NIGHT, SOMETIMES 2 A DAY)
     Route: 048
     Dates: start: 2004
  2. CELEBREX [Suspect]
     Active Substance: CELECOXIB
     Indication: PAIN
     Dosage: 200 MG, AS NEEDED (200 MG ONCE , 200 MG TWICE USUALLY AS NEEDED)
     Dates: start: 20140101
  3. LYRICA [Concomitant]
     Active Substance: PREGABALIN
     Indication: NEUROPATHY PERIPHERAL
     Dosage: 200 MG, 4X/DAY
     Dates: start: 20140101
  4. CELEBREX [Suspect]
     Active Substance: CELECOXIB
     Indication: MULTIPLE SCLEROSIS
     Dosage: 200 MG, 2X/DAY
     Route: 048
  5. SENNA CONCENTRATE [Concomitant]
     Active Substance: SENNA CONCENTRATE
     Dosage: UNK, 1X/DAY (NIGHTLY)

REACTIONS (1)
  - Constipation [Recovered/Resolved]

NARRATIVE: CASE EVENT DATE: 20190801
